FAERS Safety Report 18181506 (Version 2)
Quarter: 2020Q3

REPORT INFORMATION
  Report Type: Report from Study
  Country: BR (occurrence: BR)
  Receive Date: 20200821
  Receipt Date: 20200907
  Transmission Date: 20201103
  Serious: Yes (Other)
  Sender: FDA-Public Use
  Company Number: ALC2020BR006611

PATIENT
  Sex: Female

DRUGS (1)
  1. SYSTANE LIDWIPES [Suspect]
     Active Substance: COSMETICS
     Indication: PRODUCT USED FOR UNKNOWN INDICATION
     Dosage: 2 DF, QW (2 WIPES PER WEEK)
     Route: 065
     Dates: start: 201609

REACTIONS (5)
  - Visual impairment [Recovered/Resolved]
  - Blister [Unknown]
  - Eyelid margin crusting [Unknown]
  - Eye disorder [Unknown]
  - Blindness [Unknown]
